FAERS Safety Report 11212135 (Version 5)
Quarter: 2015Q4

REPORT INFORMATION
  Report Type: Report from Study
  Country: US (occurrence: US)
  Receive Date: 20150623
  Receipt Date: 20151015
  Transmission Date: 20160304
  Serious: Yes (Other)
  Sender: FDA-Public Use
  Company Number: US-SA-2014SA112159

PATIENT
  Age: 63 Year
  Sex: Female

DRUGS (2)
  1. AUBAGIO [Suspect]
     Active Substance: TERIFLUNOMIDE
     Indication: MULTIPLE SCLEROSIS
     Route: 048
     Dates: start: 2015
  2. AUBAGIO [Suspect]
     Active Substance: TERIFLUNOMIDE
     Indication: MULTIPLE SCLEROSIS
     Route: 048
     Dates: start: 201406, end: 20150602

REACTIONS (14)
  - Urinary tract infection [Not Recovered/Not Resolved]
  - Muscle spasticity [Unknown]
  - Skin disorder [Unknown]
  - Rash [Not Recovered/Not Resolved]
  - Cystitis [Recovered/Resolved]
  - Viral infection [Unknown]
  - Pain [Unknown]
  - Rash pruritic [Unknown]
  - Peripheral venous disease [Unknown]
  - Skin lesion [Recovered/Resolved]
  - Condition aggravated [Recovered/Resolved]
  - Body temperature fluctuation [Unknown]
  - Diarrhoea [Unknown]
  - Peripheral swelling [Unknown]

NARRATIVE: CASE EVENT DATE: 201408
